FAERS Safety Report 7306369-2 (Version None)
Quarter: 2011Q1

REPORT INFORMATION
  Report Type: 
  Country: None (occurrence: None)
  Receive Date: 20110222
  Receipt Date: 20110210
  Transmission Date: 20110831
  Serious: Yes (Other)
  Sender: FDA-Public Use
  Company Number: JP-PFIZER INC-2011031733

PATIENT
  Age: 64 Year
  Sex: Female

DRUGS (9)
  1. VOLTAREN [Concomitant]
     Dosage: UNK
     Route: 054
  2. LYRICA [Suspect]
     Indication: BACK PAIN
     Dosage: 150 MG/DAY
     Route: 048
     Dates: start: 20110207, end: 20110209
  3. PRORENAL [Concomitant]
     Dosage: UNK
     Route: 048
  4. EVISTA [Concomitant]
     Dosage: UNK
     Route: 048
  5. METHYCOBAL [Concomitant]
     Dosage: UNK
     Route: 048
  6. GASTER [Concomitant]
     Dosage: 10 MG/DAY
     Route: 048
  7. AMARYL [Concomitant]
     Dosage: 2 MG/DAY
     Route: 048
  8. EPADEL [Concomitant]
     Dosage: 600 MG/DAY
     Route: 048
  9. CELECOX [Suspect]
     Indication: BACK PAIN
     Dosage: 200 MG/DAY
     Route: 048
     Dates: start: 20110207, end: 20110209

REACTIONS (1)
  - DRUG ERUPTION [None]
